APPROVED DRUG PRODUCT: KENALOG IN ORABASE
Active Ingredient: TRIAMCINOLONE ACETONIDE
Strength: 0.1% **Federal Register determination that product was not discontinued or withdrawn for safety or effectiveness reasons**
Dosage Form/Route: PASTE;DENTAL
Application: N012097 | Product #001
Applicant: DELCOR ASSET CORP
Approved: Approved Prior to Jan 1, 1982 | RLD: Yes | RS: No | Type: DISCN